FAERS Safety Report 13922101 (Version 1)
Quarter: 2017Q3

REPORT INFORMATION
  Report Type: Spontaneous
  Country: US (occurrence: US)
  Receive Date: 20170830
  Receipt Date: 20170830
  Transmission Date: 20171127
  Serious: No
  Sender: FDA-Public Use
  Company Number: US-TARO-2017TAR00414

PATIENT
  Sex: Male
  Weight: 95.24 kg

DRUGS (2)
  1. WARFARIN SODIUM TABLETS USP 7.5MG [Suspect]
     Active Substance: WARFARIN SODIUM
     Indication: FACTOR V DEFICIENCY
     Dosage: 15 MG, 1X/DAY
     Route: 048
     Dates: start: 2017, end: 2017
  2. WARFARIN SODIUM TABLETS USP 7.5MG [Suspect]
     Active Substance: WARFARIN SODIUM
     Indication: DEEP VEIN THROMBOSIS
     Dosage: 12.5 MG, 1X/DAY
     Route: 048
     Dates: start: 2017

REACTIONS (3)
  - International normalised ratio decreased [Recovered/Resolved]
  - Product substitution issue [Not Recovered/Not Resolved]
  - International normalised ratio increased [Unknown]

NARRATIVE: CASE EVENT DATE: 2017
